FAERS Safety Report 5928710-5 (Version None)
Quarter: 2008Q4

REPORT INFORMATION
  Report Type: 
  Country: None (occurrence: None)
  Receive Date: 20081023
  Receipt Date: 20081017
  Transmission Date: 20090506
  Serious: Yes (Hospitalization)
  Sender: FDA-Public Use
  Company Number: US-TEVA-177595USA

PATIENT
  Sex: Female
  Weight: 54.4 kg

DRUGS (18)
  1. FLUOROURACIL [Suspect]
     Indication: COLON CANCER
     Dosage: 626 MG IV PIGGY BACK (626 MG, 1 IN 2 WK)
     Route: 042
     Dates: start: 20080507
  2. FLUOROURACIL [Suspect]
     Dosage: 3758 MG CONTINOUS INFUSION (3758 MG, 1 IN 2 WK)
  3. FOLINIC ACID [Suspect]
     Indication: COLON CANCER
     Route: 042
     Dates: start: 20080507
  4. BEVACIZUMAB [Suspect]
     Dates: start: 20080507
  5. OXALIPLATIN [Suspect]
     Route: 042
     Dates: start: 20080507
  6. LORAZEPAM [Concomitant]
     Route: 048
  7. ATORVASTATIN CALCIUM [Concomitant]
     Route: 048
  8. METFORMIN HYDROCHLORIDE [Concomitant]
     Route: 047
     Dates: start: 20060401
  9. RISEDRONATE SODIUM [Concomitant]
     Route: 048
     Dates: start: 20041001
  10. FLUTICASONE PROPIONATE [Concomitant]
     Route: 055
     Dates: start: 19960101
  11. MULTIVITAMIN                       /00831701/ [Concomitant]
     Route: 048
     Dates: start: 19980101
  12. VALSARTAN [Concomitant]
     Route: 048
     Dates: start: 20070101
  13. TOCOPHEROL CONCENTRATE CAP [Concomitant]
     Route: 048
     Dates: start: 19980101
  14. CALCIUM [Concomitant]
     Route: 048
     Dates: start: 19880101
  15. ACETAMINOPHEN [Concomitant]
     Route: 048
     Dates: start: 20040101
  16. IBUPROFEN [Concomitant]
     Route: 048
  17. LORATADINE [Concomitant]
     Route: 048
     Dates: start: 19960101
  18. PROCHLORPERAZINE EDISYLATE [Concomitant]
     Route: 048
     Dates: start: 20080501

REACTIONS (1)
  - PULMONARY FIBROSIS [None]
